FAERS Safety Report 6394418-8 (Version None)
Quarter: 2009Q4

REPORT INFORMATION
  Report Type: 
  Country: None (occurrence: None)
  Receive Date: 20091006
  Receipt Date: 20090928
  Transmission Date: 20100525
  Serious: Yes (Hospitalization)
  Sender: FDA-Public Use
  Company Number: DSA_41747_2009

PATIENT
  Sex: Female

DRUGS (3)
  1. VASOTEC [Suspect]
     Indication: DRUG USE FOR UNKNOWN INDICATION
     Dosage: 10 MG QD
     Dates: start: 20090408, end: 20090409
  2. RED YEAST RYE [Concomitant]
  3. MULTI-VITAMIN [Concomitant]

REACTIONS (9)
  - BLOOD PRESSURE INCREASED [None]
  - DIZZINESS [None]
  - FEELING HOT [None]
  - GAIT DISTURBANCE [None]
  - HEART RATE INCREASED [None]
  - HOT FLUSH [None]
  - MALAISE [None]
  - MIDDLE INSOMNIA [None]
  - NAUSEA [None]
